FAERS Safety Report 5511742-9 (Version None)
Quarter: 2007Q4

REPORT INFORMATION
  Report Type: 
  Country: None (occurrence: None)
  Receive Date: 20071109
  Receipt Date: 20071107
  Transmission Date: 20080405
  Serious: Yes (Other)
  Sender: FDA-Public Use
  Company Number: US-ROXANE LABORATORIES, INC-2007-BP-24006RO

PATIENT
  Age: 47 Year
  Sex: Female

DRUGS (7)
  1. CALCIUM CARBONATE [Suspect]
  2. CALCIUM CARBONATE AND VITAMIN D [Suspect]
  3. RISPERDAL [Suspect]
  4. LEVOTHYROXINE SODIUM [Suspect]
     Indication: HYPOTHYROIDISM
  5. ALENDRONATE SODIUM [Suspect]
  6. RALOXIFENE HCL [Suspect]
  7. FUROSEMIDE [Concomitant]
     Indication: HYPERCALCAEMIA

REACTIONS (7)
  - ABDOMINAL PAIN [None]
  - ANOREXIA [None]
  - CONSTIPATION [None]
  - HYPERCALCAEMIA [None]
  - LETHARGY [None]
  - MILK-ALKALI SYNDROME [None]
  - RENAL IMPAIRMENT [None]
